FAERS Safety Report 4403317-X (Version None)
Quarter: 2004Q3

REPORT INFORMATION
  Report Type: 
  Country: None (occurrence: None)
  Receive Date: 20040721
  Receipt Date: 20040420
  Transmission Date: 20050211
  Serious: No
  Sender: FDA-Public Use
  Company Number: US-GLAXOSMITHKLINE-A0507697A

PATIENT
  Age: 50 Year
  Sex: Female

DRUGS (4)
  1. IMITREX [Suspect]
     Indication: MIGRAINE
     Dosage: 50MG FIVE TIMES PER DAY
     Route: 048
     Dates: start: 20040419
  2. IBUPROFEN [Concomitant]
  3. AUGMENTIN '125' [Concomitant]
  4. BIRTH CONTROL PILL [Concomitant]

REACTIONS (1)
  - DRUG INEFFECTIVE [None]
